FAERS Safety Report 8342600-2 (Version None)
Quarter: 2012Q2

REPORT INFORMATION
  Report Type: 
  Country: None (occurrence: None)
  Receive Date: 20120508
  Receipt Date: 20120426
  Transmission Date: 20120825
  Serious: No
  Sender: FDA-Public Use
  Company Number: US-BIOGENIDEC-2012BI015286

PATIENT
  Sex: Female

DRUGS (5)
  1. ELAVIL [Concomitant]
     Indication: SLEEP DISORDER
  2. MIRAPEX [Concomitant]
  3. NUEDEXTA [Concomitant]
     Indication: DEPRESSION
  4. TYSABRI [Suspect]
     Indication: MULTIPLE SCLEROSIS
     Route: 042
     Dates: start: 20091221
  5. VALIUM [Concomitant]
     Indication: SLEEP DISORDER

REACTIONS (7)
  - HEADACHE [None]
  - MEMORY IMPAIRMENT [None]
  - FATIGUE [None]
  - APHASIA [None]
  - DIPLOPIA [None]
  - PAIN IN EXTREMITY [None]
  - TREMOR [None]
